FAERS Safety Report 9959814 (Version 1)
Quarter: 2014Q1

REPORT INFORMATION
  Report Type: Report from Study
  Country: US (occurrence: US)
  Receive Date: 20140305
  Receipt Date: 20140305
  Transmission Date: 20141002
  Serious: No
  Sender: FDA-Public Use
  Company Number: US-ABBVIE-13P-163-1105976-00

PATIENT
  Age: 51 Year
  Sex: Female

DRUGS (3)
  1. HUMIRA [Suspect]
     Indication: CROHN^S DISEASE
     Dates: start: 20130126
  2. LUNESTA [Concomitant]
     Indication: INSOMNIA
     Dosage: 3 MG DAILY
  3. ASACOL [Concomitant]
     Indication: CROHN^S DISEASE

REACTIONS (2)
  - Drug dose omission [Recovering/Resolving]
  - Nasopharyngitis [Recovering/Resolving]
